FAERS Safety Report 23998309 (Version 2)
Quarter: 2024Q3

REPORT INFORMATION
  Report Type: Spontaneous
  Country: JP (occurrence: JP)
  Receive Date: 20240621
  Receipt Date: 20240711
  Transmission Date: 20241017
  Serious: No
  Sender: ASTELLAS
  Company Number: JP-ASTELLAS-2024JP004195

PATIENT
  Age: 5 Decade
  Sex: Female

DRUGS (1)
  1. PROGRAF [Interacting]
     Active Substance: TACROLIMUS
     Indication: Prophylaxis against graft versus host disease
     Dosage: UNK UNK, TWICE DAILY(8:00, 20:00)
     Route: 048

REACTIONS (2)
  - Immunosuppressant drug level abnormal [Unknown]
  - Drug interaction [Unknown]
